FAERS Safety Report 9342706 (Version 1)
Quarter: 2013Q2

REPORT INFORMATION
  Report Type: Spontaneous
  Country: US (occurrence: US)
  Receive Date: 20130611
  Receipt Date: 20130611
  Transmission Date: 20140414
  Serious: No
  Sender: FDA-Public Use
  Company Number: US-009507513-1305USA012282

PATIENT
  Age: 58 Year
  Sex: Female

DRUGS (1)
  1. COSOPT [Suspect]
     Indication: GLAUCOMA
     Dosage: DROP(S) IN AFFECTED
     Route: 047
     Dates: start: 20130506, end: 20130506

REACTIONS (1)
  - Eye irritation [Recovering/Resolving]
